FAERS Safety Report 8034365-9 (Version None)
Quarter: 2012Q1

REPORT INFORMATION
  Report Type: 
  Country: None (occurrence: None)
  Receive Date: 20120110
  Receipt Date: 20120105
  Transmission Date: 20120608
  Serious: Yes (Hospitalization, Other)
  Sender: FDA-Public Use
  Company Number: PHHY2012GB000976

PATIENT
  Age: 20 Year
  Sex: Female

DRUGS (4)
  1. AMOXICILLIN [Suspect]
  2. SYMBICORT [Suspect]
  3. PREDNISOLONE [Suspect]
     Indication: ASTHMA
     Dosage: 5 MG, UNK
  4. ALBUTEROL SULFATE AUTOHALER [Suspect]

REACTIONS (4)
  - PNEUMONIA [None]
  - MATERNAL EXPOSURE DURING PREGNANCY [None]
  - EXPIRED DRUG ADMINISTERED [None]
  - MEDICATION ERROR [None]
